FAERS Safety Report 18253298 (Version 7)
Quarter: 2022Q4

REPORT INFORMATION
  Report Type: Spontaneous
  Country: US (occurrence: US)
  Receive Date: 20200910
  Receipt Date: 20221024
  Transmission Date: 20230112
  Serious: No
  Sender: FDA-Public Use
  Company Number: US-PFIZER INC-2020348602

PATIENT
  Age: 75 Year
  Sex: Female

DRUGS (2)
  1. DICLOFENAC EPOLAMINE [Suspect]
     Active Substance: DICLOFENAC EPOLAMINE
     Dosage: UNK, 2X/DAY (TOPICAL SYSTEM EVERY 12 HOURS THE ADEHSIVE IS DIFFERENT)
     Route: 061
  2. DICLOFENAC EPOLAMINE [Suspect]
     Active Substance: DICLOFENAC EPOLAMINE
     Dosage: UNK
     Route: 061
     Dates: start: 2020

REACTIONS (6)
  - Drug ineffective [Unknown]
  - Poor quality device used [Unknown]
  - Device adhesion issue [Unknown]
  - Allergic reaction to excipient [Unknown]
  - Pruritus [Unknown]
  - Skin irritation [Unknown]

NARRATIVE: CASE EVENT DATE: 20200101
